FAERS Safety Report 24944903 (Version 1)
Quarter: 2025Q1

REPORT INFORMATION
  Report Type: Report from Study
  Country: US (occurrence: US)
  Receive Date: 20250208
  Receipt Date: 20250208
  Transmission Date: 20250408
  Serious: Yes (Disabling, Other)
  Sender: JOHNSON AND JOHNSON
  Company Number: US-JNJFOC-20250218013

PATIENT
  Age: 81 Year
  Sex: Male

DRUGS (1)
  1. XARELTO [Suspect]
     Active Substance: RIVAROXABAN
     Indication: Atrial fibrillation
     Route: 048

REACTIONS (6)
  - Cerebrovascular accident [Unknown]
  - Disability [Unknown]
  - Accident [Unknown]
  - Arthralgia [Not Recovered/Not Resolved]
  - Soft tissue injury [Unknown]
  - Nerve injury [Unknown]

NARRATIVE: CASE EVENT DATE: 20240424
